FAERS Safety Report 6430019-0 (Version None)
Quarter: 2009Q4

REPORT INFORMATION
  Report Type: 
  Country: None (occurrence: None)
  Receive Date: 20091106
  Receipt Date: 20091029
  Transmission Date: 20100525
  Serious: Yes (Other)
  Sender: FDA-Public Use
  Company Number: BR-ASTRAZENECA-2009SE23557

PATIENT
  Age: 71 Year
  Sex: Female
  Weight: 88 kg

DRUGS (2)
  1. ATACAND [Suspect]
     Indication: HYPERTENSION
     Route: 048
     Dates: start: 20090501, end: 20090801
  2. ATACAND HCT [Suspect]
     Indication: HYPERTENSION
     Dosage: 16/12.5 MG
     Route: 048
     Dates: start: 20090801

REACTIONS (3)
  - BLOOD PRESSURE ABNORMAL [None]
  - NEOPLASM [None]
  - PAIN IN EXTREMITY [None]
